FAERS Safety Report 5793029-2 (Version None)
Quarter: 2008Q2

REPORT INFORMATION
  Report Type: 
  Country: None (occurrence: None)
  Receive Date: 20080627
  Receipt Date: 20080619
  Transmission Date: 20081010
  Serious: Yes (Hospitalization)
  Sender: FDA-Public Use
  Company Number: JP-NOVOPROD-276651

PATIENT

DRUGS (3)
  1. NOVORAPID 30 MIX CHU FLEXPEN [Suspect]
     Dosage: 8-10 IU, QD
     Route: 058
     Dates: start: 20080101
  2. NOVOLIN R [Suspect]
     Indication: DIABETES MELLITUS
     Dosage: 8-10 IU, QD
     Route: 058
     Dates: start: 20080101
  3. INSULIN LISPRO [Concomitant]
     Indication: DIABETES MELLITUS
     Dosage: 90-50-0 IU, QD

REACTIONS (3)
  - ANTI-INSULIN ANTIBODY [None]
  - BLOOD GLUCOSE FLUCTUATION [None]
  - HYPOGLYCAEMIA [None]
